FAERS Safety Report 16963095 (Version 8)
Quarter: 2021Q4

REPORT INFORMATION
  Report Type: Spontaneous
  Country: JP (occurrence: JP)
  Receive Date: 20191025
  Receipt Date: 20211227
  Transmission Date: 20220303
  Serious: Yes (Hospitalization, Other)
  Sender: FDA-Public Use
  Company Number: JP-BRISTOL-MYERS SQUIBB COMPANY-BMS-2019-024981

PATIENT
  Age: 71 Year
  Sex: Male
  Weight: 60 kg

DRUGS (15)
  1. YERVOY [Suspect]
     Active Substance: IPILIMUMAB
     Indication: Renal cell carcinoma
     Dosage: 1 MILLIGRAM/KILOGRAM, Q3WK
     Route: 041
     Dates: start: 20190215, end: 20190501
  2. OPDIVO [Suspect]
     Active Substance: NIVOLUMAB
     Indication: Renal cell carcinoma
     Dosage: 240 MILLIGRAM, Q3WK
     Route: 041
     Dates: start: 20190215, end: 20190612
  3. WARFARIN SODIUM [Suspect]
     Active Substance: WARFARIN SODIUM
     Indication: Product used for unknown indication
     Dosage: 3.75 MILLIGRAM, QD
     Route: 048
     Dates: end: 20190308
  4. WARFARIN SODIUM [Suspect]
     Active Substance: WARFARIN SODIUM
     Dosage: 2 MILLIGRAM
     Route: 048
     Dates: start: 20190318
  5. WARFARIN SODIUM [Suspect]
     Active Substance: WARFARIN SODIUM
     Dosage: 3 MILLIGRAM
     Route: 048
     Dates: start: 20190321
  6. WARFARIN SODIUM [Suspect]
     Active Substance: WARFARIN SODIUM
     Dosage: 3.75 MILLIGRAM
     Route: 048
     Dates: start: 20190327
  7. WARFARIN SODIUM [Suspect]
     Active Substance: WARFARIN SODIUM
     Dosage: 3.5 MILLIGRAM
     Route: 048
     Dates: start: 20190409
  8. WARFARIN SODIUM [Suspect]
     Active Substance: WARFARIN SODIUM
     Dosage: UNK
  9. TENORMIN [Concomitant]
     Active Substance: ATENOLOL
     Indication: Product used for unknown indication
     Dosage: UNK
     Route: 065
  10. OLMESARTAN MEDOXOMIL [Concomitant]
     Active Substance: OLMESARTAN MEDOXOMIL
     Indication: Product used for unknown indication
     Dosage: 20 MILLIGRAM, QD
     Route: 048
  11. ASPIRIN [Concomitant]
     Active Substance: ASPIRIN
     Indication: Product used for unknown indication
     Dosage: 100 MILLIGRAM, QD
     Route: 048
  12. LUBIPROSTONE [Concomitant]
     Active Substance: LUBIPROSTONE
     Indication: Product used for unknown indication
     Dosage: 48 MICROGRAM
     Route: 065
  13. LANSOPRAZOLE [Concomitant]
     Active Substance: LANSOPRAZOLE
     Indication: Product used for unknown indication
     Dosage: 15 MILLIGRAM
     Route: 065
  14. ROSUVASTATIN [Concomitant]
     Active Substance: ROSUVASTATIN
     Indication: Product used for unknown indication
     Dosage: 2.5 MILLIGRAM
     Route: 065
  15. MAGNESIUM OXIDE [Concomitant]
     Active Substance: MAGNESIUM OXIDE
     Indication: Product used for unknown indication
     Dosage: 250 MILLIGRAM
     Route: 065

REACTIONS (11)
  - Immune-mediated hyperthyroidism [Recovering/Resolving]
  - Prothrombin time ratio abnormal [Recovered/Resolved]
  - Hepatic function abnormal [Recovering/Resolving]
  - Intracranial haematoma [Recovering/Resolving]
  - Intra-abdominal haematoma [Recovering/Resolving]
  - Anaemia [Recovered/Resolved]
  - Fall [Recovered/Resolved]
  - Hypothyroidism [Unknown]
  - Liver disorder [Unknown]
  - Rash [Recovered/Resolved]
  - Erythema [Unknown]

NARRATIVE: CASE EVENT DATE: 20190226
